FAERS Safety Report 23723641 (Version 2)
Quarter: 2024Q2

REPORT INFORMATION
  Report Type: Report from Study
  Country: AU (occurrence: AU)
  Receive Date: 20240409
  Receipt Date: 20240613
  Transmission Date: 20240715
  Serious: Yes (Hospitalization)
  Sender: FDA-Public Use
  Company Number: AU-JNJFOC-20240411605

PATIENT
  Age: 72 Year
  Sex: Male

DRUGS (36)
  1. DARATUMUMAB [Suspect]
     Active Substance: DARATUMUMAB
     Indication: Plasma cell myeloma
     Dosage: MOST RECENT DOSE OF DRUG ADMINISTERED ON 27-NOV-2023
     Route: 058
     Dates: start: 20210303
  2. POMALIDOMIDE [Suspect]
     Active Substance: POMALIDOMIDE
     Indication: Plasma cell myeloma
     Dosage: MOST RECENT DOSE OF DRUG ADMINISTERED ON 27-JAN-2024
     Route: 048
     Dates: start: 20210303
  3. DEXAMETHASONE [Suspect]
     Active Substance: DEXAMETHASONE
     Indication: Plasma cell myeloma
     Dosage: MOST RECENT DOSE OF DRUG ADMINISTERED ON 22-JAN-2024.
     Route: 048
     Dates: start: 20210303
  4. MINERALS\VITAMINS [Concomitant]
     Active Substance: MINERALS\VITAMINS
  5. MONTELUKAST [Concomitant]
     Active Substance: MONTELUKAST SODIUM
     Indication: Rhinitis allergic
     Route: 048
     Dates: start: 20210526
  6. EZETIMIBE [Concomitant]
     Active Substance: EZETIMIBE
     Indication: Blood cholesterol increased
     Route: 048
     Dates: start: 20060101
  7. ESCITALOPRAM [Concomitant]
     Active Substance: ESCITALOPRAM OXALATE
  8. ALBUTEROL [Concomitant]
     Active Substance: ALBUTEROL
  9. AZELASTINE [Concomitant]
     Active Substance: AZELASTINE\AZELASTINE HYDROCHLORIDE
  10. MOMETASONE [Concomitant]
     Active Substance: MOMETASONE
  11. TRAZODONE [Concomitant]
     Active Substance: TRAZODONE HYDROCHLORIDE
  12. ACYCLOVIR [Concomitant]
     Active Substance: ACYCLOVIR
     Indication: Antiviral prophylaxis
     Route: 048
     Dates: start: 20171001
  13. CALCIUM CARBONATE\CHOLECALCIFEROL [Concomitant]
     Active Substance: CALCIUM CARBONATE\CHOLECALCIFEROL
  14. HERBALS\TURMERIC [Concomitant]
     Active Substance: HERBALS\TURMERIC
  15. MORPHINE [Concomitant]
     Active Substance: MORPHINE
     Indication: Back pain
     Route: 048
     Dates: start: 20210210
  16. OXYCODONE [Concomitant]
     Active Substance: OXYCODONE\OXYCODONE HYDROCHLORIDE
     Indication: Back pain
     Route: 048
     Dates: start: 20210210
  17. FAMOTIDINE [Concomitant]
     Active Substance: FAMOTIDINE
     Indication: Prophylaxis
     Route: 048
  18. IMODIUM [Concomitant]
     Active Substance: LOPERAMIDE HYDROCHLORIDE
     Indication: Diarrhoea
     Route: 048
     Dates: start: 20210315
  19. SINGULAIR [Concomitant]
     Active Substance: MONTELUKAST SODIUM
     Indication: Rhinitis allergic
     Route: 048
     Dates: start: 20210526
  20. CANNABIDIOL\HERBALS [Concomitant]
     Active Substance: CANNABIDIOL\HERBALS
     Indication: Analgesic therapy
     Route: 061
     Dates: start: 20211025
  21. APIXABAN [Concomitant]
     Active Substance: APIXABAN
     Indication: Atrial fibrillation
     Route: 048
     Dates: start: 20211212
  22. MELATONIN [Concomitant]
     Active Substance: MELATONIN
     Indication: Insomnia
     Route: 048
     Dates: start: 20221229
  23. ZOMETA [Concomitant]
     Active Substance: ZOLEDRONIC ACID
     Indication: Fall
     Route: 042
     Dates: start: 20230109
  24. ZOMETA [Concomitant]
     Active Substance: ZOLEDRONIC ACID
     Indication: Rib fracture
  25. ZOMETA [Concomitant]
     Active Substance: ZOLEDRONIC ACID
     Indication: Spinal fracture
  26. SIMVASTATIN [Concomitant]
     Active Substance: SIMVASTATIN
     Indication: Blood cholesterol increased
     Route: 048
     Dates: start: 20230216
  27. METOPROLOL [Concomitant]
     Active Substance: METOPROLOL
  28. TOPROL XL [Concomitant]
     Active Substance: METOPROLOL SUCCINATE
  29. METOPROLOL [Concomitant]
     Active Substance: METOPROLOL
     Indication: Atrial fibrillation
     Route: 042
  30. METOPROLOL [Concomitant]
     Active Substance: METOPROLOL
     Indication: Arrhythmia
     Route: 042
  31. METOPROLOL [Concomitant]
     Active Substance: METOPROLOL
     Indication: Hypertension
  32. METOPROLOL [Concomitant]
     Active Substance: METOPROLOL
     Indication: Atrial fibrillation
     Route: 048
     Dates: start: 20240129
  33. METOPROLOL [Concomitant]
     Active Substance: METOPROLOL
     Indication: Product used for unknown indication
     Route: 048
     Dates: start: 20230918
  34. METOPROLOL [Concomitant]
     Active Substance: METOPROLOL
     Route: 048
     Dates: start: 20240131, end: 20240131
  35. METOPROLOL [Concomitant]
     Active Substance: METOPROLOL
     Route: 048
     Dates: start: 20240129, end: 20240131
  36. METOPROLOL [Concomitant]
     Active Substance: METOPROLOL
     Route: 048
     Dates: start: 20240201, end: 20240201

REACTIONS (4)
  - Pneumonia [Recovered/Resolved]
  - Pulmonary oedema [Recovered/Resolved]
  - Dyspnoea [Not Recovered/Not Resolved]
  - Pleural effusion [Recovered/Resolved]

NARRATIVE: CASE EVENT DATE: 20240128
